FAERS Safety Report 6264105-5 (Version None)
Quarter: 2009Q3

REPORT INFORMATION
  Report Type: 
  Country: None (occurrence: None)
  Receive Date: 20090710
  Receipt Date: 20090629
  Transmission Date: 20100115
  Serious: No
  Sender: FDA-Public Use
  Company Number: US-ELI_LILLY_AND_COMPANY-US200904002809

PATIENT
  Age: 51 Year
  Sex: Male

DRUGS (2)
  1. CYMBALTA [Suspect]
     Indication: DEPRESSION
     Dosage: 60 MG, UNK
     Route: 048
     Dates: start: 20070101, end: 20090401
  2. SOLUTIONS FOR PARENTERAL NUTRITION [Concomitant]
     Route: 042

REACTIONS (1)
  - JAUNDICE [None]
